FAERS Safety Report 25343087 (Version 1)
Quarter: 2025Q2

REPORT INFORMATION
  Report Type: Report from Study
  Country: US (occurrence: US)
  Receive Date: 20250521
  Receipt Date: 20250521
  Transmission Date: 20250716
  Serious: Yes (Hospitalization)
  Sender: MALLINCKRODT
  Company Number: US-MALLINCKRODT-MNK202500848

PATIENT
  Sex: Female
  Weight: 184 kg

DRUGS (1)
  1. CORTICOTROPIN [Suspect]
     Active Substance: CORTICOTROPIN
     Indication: Dry eye

REACTIONS (7)
  - COVID-19 [Unknown]
  - Cerebrovascular accident [Unknown]
  - Sepsis [Unknown]
  - Eye disorder [Not Recovered/Not Resolved]
  - Fall [Unknown]
  - Eye contusion [Unknown]
  - Musculoskeletal stiffness [Unknown]

NARRATIVE: CASE EVENT DATE: 20250101
